FAERS Safety Report 21639315 (Version 1)
Quarter: 2022Q4

REPORT INFORMATION
  Report Type: Spontaneous
  Country: CN (occurrence: CN)
  Receive Date: 20221124
  Receipt Date: 20221124
  Transmission Date: 20230113
  Serious: Yes (Hospitalization, Other)
  Sender: FDA-Public Use
  Company Number: CN-009507513-2211CHN006378

PATIENT
  Age: 38 Year
  Sex: Female

DRUGS (2)
  1. CILASTATIN SODIUM\IMIPENEM [Suspect]
     Active Substance: CILASTATIN SODIUM\IMIPENEM
     Indication: Febrile infection
     Dosage: 0.5G, Q12H
     Route: 041
     Dates: start: 20221107, end: 20221114
  2. CILASTATIN SODIUM\IMIPENEM [Suspect]
     Active Substance: CILASTATIN SODIUM\IMIPENEM
     Indication: Anti-infective therapy

REACTIONS (4)
  - Neurotoxicity [Recovering/Resolving]
  - Epilepsy [Unknown]
  - Toxic encephalopathy [Unknown]
  - Organic brain syndrome [Unknown]

NARRATIVE: CASE EVENT DATE: 20221114
